FAERS Safety Report 7315985-3 (Version None)
Quarter: 2011Q1

REPORT INFORMATION
  Report Type: 
  Country: None (occurrence: None)
  Receive Date: 20110225
  Receipt Date: 20110216
  Transmission Date: 20110831
  Serious: Yes (Other)
  Sender: FDA-Public Use
  Company Number: PHHY2011BR13122

PATIENT
  Age: 68 Year
  Sex: Female

DRUGS (3)
  1. EXELON [Suspect]
  2. TRILEPTAL [Concomitant]
  3. RIVOTRIL [Concomitant]

REACTIONS (1)
  - FRONTOTEMPORAL DEMENTIA [None]
